FAERS Safety Report 6089567-8 (Version None)
Quarter: 2009Q1

REPORT INFORMATION
  Report Type: 
  Country: None (occurrence: None)
  Receive Date: 20090218
  Receipt Date: 20090218
  Transmission Date: 20090719
  Serious: Yes (Hospitalization)
  Sender: FDA-Public Use
  Company Number: None

PATIENT
  Age: 52 Year
  Sex: Male
  Weight: 153.2 kg

DRUGS (14)
  1. PAROXETINE HCL [Suspect]
     Indication: MAJOR DEPRESSION
     Dosage: 20 MG QD - ORAL
     Route: 048
     Dates: start: 20081113, end: 20090107
  2. MULTIVITAMIN/MULTIMINERAL SUPPLEMENT [Concomitant]
  3. EUCALYPTUS OIL/MENTHOL [Concomitant]
  4. ZOLPIDEM TARTRATE [Concomitant]
  5. RAMELTEON [Concomitant]
  6. OXYCODONE AND ACETAMINOPHEN [Concomitant]
  7. ALBUTEROL [Concomitant]
  8. IPRATROPIUM BROMIDE [Concomitant]
  9. AMLODIPINE BESYLATE [Concomitant]
  10. ACETYLSALICYLIC ACID [Concomitant]
  11. CARVEDILOL [Concomitant]
  12. FUROSEMIDE [Concomitant]
  13. LISINOPRIL [Concomitant]
  14. SPIRONOLACTONE [Concomitant]

REACTIONS (11)
  - ATRIAL FIBRILLATION [None]
  - BLOOD PRESSURE INCREASED [None]
  - CONGESTIVE CARDIOMYOPATHY [None]
  - FLUID OVERLOAD [None]
  - HYPERHIDROSIS [None]
  - INAPPROPRIATE SCHEDULE OF DRUG ADMINISTRATION [None]
  - OBESITY [None]
  - PALPITATIONS [None]
  - TREATMENT NONCOMPLIANCE [None]
  - UPPER RESPIRATORY TRACT INFECTION [None]
  - VARICOSE VEIN [None]
